FAERS Safety Report 21087773 (Version 1)
Quarter: 2022Q3

REPORT INFORMATION
  Report Type: Spontaneous
  Country: US (occurrence: None)
  Receive Date: 20220714
  Receipt Date: 20220714
  Transmission Date: 20221027
  Serious: Yes (Life-Threatening, Hospitalization, Disabling)
  Sender: FDA-Public Use
  Company Number: None

PATIENT
  Age: 90 Year
  Sex: Female
  Weight: 49.5 kg

DRUGS (9)
  1. PROLIA [Suspect]
     Active Substance: DENOSUMAB
     Indication: Osteoporosis
     Dosage: OTHER FREQUENCY : EVERY 6 MONTHS;?
     Route: 058
  2. Pacemaker/defibrillator [Concomitant]
  3. ENTRESTO [Concomitant]
     Active Substance: SACUBITRIL\VALSARTAN
  4. EES Letonoprest [Concomitant]
  5. DORZOLAMIDE [Concomitant]
     Active Substance: DORZOLAMIDE
  6. CARVEDILOL [Concomitant]
     Active Substance: CARVEDILOL
  7. One-A-Day vitamin [Concomitant]
  8. LUTEIN [Concomitant]
     Active Substance: LUTEIN
  9. TYLENOL [Concomitant]
     Active Substance: ACETAMINOPHEN

REACTIONS (15)
  - Therapy interrupted [None]
  - Pain [None]
  - Spinal compression fracture [None]
  - Amnesia [None]
  - Anal incontinence [None]
  - Urinary incontinence [None]
  - Constipation [None]
  - Anxiety [None]
  - Spinal compression fracture [None]
  - Multiple fractures [None]
  - Blood pressure increased [None]
  - Pulmonary function test decreased [None]
  - Asthenia [None]
  - Mobility decreased [None]
  - Bedridden [None]

NARRATIVE: CASE EVENT DATE: 20220422
